FAERS Safety Report 5683194-X (Version None)
Quarter: 2008Q1

REPORT INFORMATION
  Report Type: 
  Country: None (occurrence: None)
  Receive Date: 20080326
  Receipt Date: 20080318
  Transmission Date: 20080703
  Serious: Yes (Hospitalization, Other)
  Sender: FDA-Public Use
  Company Number: 163-21880-08031118

PATIENT
  Age: 60 Year
  Sex: Male
  Weight: 79.5 kg

DRUGS (19)
  1. REVLIMID [Suspect]
     Indication: CHRONIC LYMPHOCYTIC LEUKAEMIA
     Dosage: 2.5 MG, QD D1-21 OF 28 DAY CYCLE, ORAL
     Route: 048
     Dates: start: 20080225, end: 20080314
  2. RITUXIMAB(RITUXIMAB) [Suspect]
     Indication: CHRONIC LYMPHOCYTIC LEUKAEMIA
     Dosage: 375 MG.M2, DAYS 1+3, INTRAVENOUS
     Route: 042
     Dates: start: 20080225, end: 20080314
  3. FLUDARABINE PHOSPHATE [Suspect]
     Indication: CHRONIC LYMPHOCYTIC LEUKAEMIA
     Dosage: 25 MG/M2, DAYS 1-3, INTRAVENOUS
     Route: 042
     Dates: start: 20080225, end: 20080314
  4. SIMVASTATIN(SIMVASTATIN) (10 MILLIGRAM) [Concomitant]
  5. ISINOPRIL (LISINOPRIL)(20 MILLIGRAM, TABLETS) [Concomitant]
  6. ACYCLOVIR(ACICLOVIR)(400 MILLIGRAM, TABLETS) [Concomitant]
  7. ATIVAN [Concomitant]
  8. COMPAZINE (PROCHLORPERAZINE EDISYLATE)(10 MILLIGRAM, TABLETS) [Concomitant]
  9. BETAMETHASONE DIPROPIONATE (BETAMETHASONE DIPROPIONATE)(CREAM) [Concomitant]
  10. DOXEPIN HCL [Concomitant]
  11. EFFEXOR XR [Concomitant]
  12. HYDROXYZINE HCL (HYDROXYZINE HYDROCHLORIDE)(25 MILLIGRAM, TABLETS) [Concomitant]
  13. LAC-HYDRIN (AMMONIUM LACTATE) [Concomitant]
  14. MEPRON (ATOVAQUONE)(SUSPENSION) [Concomitant]
  15. PRILOSEC (OMEPRAZOLE)(20 MILLIGRAM, SUSPENSION) [Concomitant]
  16. RETINOIC ACID (TRETINOIN)(CREAM) [Concomitant]
  17. TRIAMCINOLONE (TRIAMCINOLONE) (CREAM) [Concomitant]
  18. WELLBUTRIN SR (BUPROPION HYDROCHLORIDE)(CREAM) [Concomitant]
  19. TRAZADONE (TRAZADONE) (TABLETS) [Concomitant]

REACTIONS (1)
  - RHABDOMYOLYSIS [None]
